FAERS Safety Report 4317389-4 (Version None)
Quarter: 2004Q1

REPORT INFORMATION
  Report Type: 
  Country: None (occurrence: None)
  Receive Date: 20040312
  Receipt Date: 20040305
  Transmission Date: 20041129
  Serious: Yes (Hospitalization)
  Sender: FDA-Public Use
  Company Number: 2004UW04079

PATIENT
  Sex: Male

DRUGS (1)
  1. NEXIUM [Suspect]
     Indication: GASTROOESOPHAGEAL REFLUX DISEASE

REACTIONS (2)
  - CONDITION AGGRAVATED [None]
  - GASTROOESOPHAGEAL REFLUX DISEASE [None]
